FAERS Safety Report 10247710 (Version 3)
Quarter: 2014Q3

REPORT INFORMATION
  Report Type: Spontaneous
  Country: US (occurrence: US)
  Receive Date: 20140619
  Receipt Date: 20140806
  Transmission Date: 20150326
  Serious: Yes (Other)
  Sender: FDA-Public Use
  Company Number: US-TEVA-488432USA

PATIENT
  Sex: Female

DRUGS (1)
  1. DULOXETINE [Suspect]
     Active Substance: DULOXETINE
     Indication: FIBROMYALGIA

REACTIONS (10)
  - Anger [Unknown]
  - Adverse event [Unknown]
  - Hallucination, auditory [Unknown]
  - Multiple sclerosis [Unknown]
  - Depression [Unknown]
  - Drug ineffective [Unknown]
  - Pain [Unknown]
  - Product substitution issue [Unknown]
  - Homicidal ideation [Unknown]
  - Hallucination, visual [Unknown]
